FAERS Safety Report 6056540-5 (Version None)
Quarter: 2009Q1

REPORT INFORMATION
  Report Type: 
  Country: None (occurrence: None)
  Receive Date: 20090126
  Receipt Date: 20090114
  Transmission Date: 20090719
  Serious: Yes (Other)
  Sender: FDA-Public Use
  Company Number: CHPA2009US00650

PATIENT
  Age: 68 Year
  Sex: Female
  Weight: 63.5 kg

DRUGS (3)
  1. 4 WAY SALINE MOISTURIZING MIST  (NO INGREDIENTS/SUBSTANCES) NASAL SPRA [Suspect]
     Indication: NASOPHARYNGITIS
     Dosage: QD FOR APPROX. 3 TO 4 YEARS, NASAL
     Route: 045
  2. ANTICOAGULANTS (ANTICOAGULANTS) [Concomitant]
  3. THYROID PREPARATIONS (NO INGREDIENTS/SUBSTANCES) [Concomitant]

REACTIONS (1)
  - HYPERTENSION [None]
